FAERS Safety Report 16713923 (Version 1)
Quarter: 2019Q3

REPORT INFORMATION
  Report Type: Spontaneous
  Country: US (occurrence: US)
  Receive Date: 20190819
  Receipt Date: 20190819
  Transmission Date: 20191004
  Serious: No
  Sender: FDA-Public Use
  Company Number: US-CELGENEUS-USA-20181101204

PATIENT
  Sex: Male

DRUGS (3)
  1. REVLIMID [Suspect]
     Active Substance: LENALIDOMIDE
     Indication: PLASMA CELL MYELOMA IN REMISSION
     Dosage: 2.5 MILLIGRAM
     Route: 048
     Dates: start: 201808
  2. REVLIMID [Suspect]
     Active Substance: LENALIDOMIDE
     Indication: PLASMA CELL MYELOMA IN REMISSION
     Dosage: 10 MILLIGRAM
     Route: 048
     Dates: start: 20170630
  3. REVLIMID [Suspect]
     Active Substance: LENALIDOMIDE
     Indication: BODY MASS INDEX
     Dosage: 5 MILLIGRAM
     Route: 048
     Dates: start: 201803

REACTIONS (2)
  - Fatigue [Recovered/Resolved]
  - Back disorder [Recovered/Resolved]
